FAERS Safety Report 7481663-3 (Version None)
Quarter: 2011Q2

REPORT INFORMATION
  Report Type: 
  Country: None (occurrence: None)
  Receive Date: 20110516
  Receipt Date: 20110505
  Transmission Date: 20111010
  Serious: Yes (Hospitalization, Other)
  Sender: FDA-Public Use
  Company Number: US-ROCHE-775979

PATIENT
  Sex: Female

DRUGS (33)
  1. AVASTIN [Suspect]
     Route: 042
     Dates: start: 20100514
  2. CLONIDINE [Concomitant]
     Indication: HYPERTENSION
     Dosage: START DATE: 24/6 ; STOP DATE:26/6
     Route: 048
  3. XANAX [Concomitant]
     Indication: ANXIETY
     Route: 048
     Dates: start: 20080101
  4. ALLEGRA [Concomitant]
     Route: 048
  5. ARICEPT [Concomitant]
     Indication: DEMENTIA
     Dosage: START DATE :14/5
     Route: 048
  6. MILES MIXTURE [Concomitant]
     Route: 048
     Dates: start: 20100518
  7. ZANAFLEX [Concomitant]
     Route: 048
     Dates: start: 20080101
  8. MULTI VIT [Concomitant]
     Dosage: FREQUENCY: QD
     Route: 048
     Dates: start: 20100101
  9. VESICARE [Concomitant]
     Dosage: 10 MG ONCE EVERY MORNING
     Route: 048
     Dates: start: 20080101
  10. MIRALAX [Concomitant]
     Indication: CONSTIPATION
     Dosage: TTD:17.9 OZ
     Route: 048
     Dates: start: 19900101
  11. SENOKOT [Concomitant]
     Indication: CONSTIPATION
     Route: 048
     Dates: start: 19900101
  12. REQUIP [Concomitant]
     Route: 048
     Dates: start: 20040101
  13. FLONASE [Concomitant]
     Route: 045
     Dates: start: 20080101
  14. PRIMIDONE [Concomitant]
     Indication: TREMOR
     Dates: start: 20080101
  15. PROPRANOLOL [Concomitant]
     Indication: HYPERTENSION
     Route: 048
     Dates: start: 19800101
  16. DEPAKOTE [Concomitant]
     Indication: SLEEP DISORDER
     Route: 048
     Dates: start: 20000101
  17. FOSAMAX PLUS D [Concomitant]
     Route: 048
     Dates: start: 20000101
  18. PRILOSEC [Concomitant]
     Route: 048
     Dates: start: 20090101
  19. CYMBALTA [Concomitant]
     Indication: DEPRESSION
     Dosage: ONCE EVERY MORNING
     Route: 048
     Dates: start: 20090901
  20. ZOFRAN [Concomitant]
     Indication: NAUSEA
     Route: 048
     Dates: start: 20100514
  21. NORVASC [Concomitant]
     Indication: HYPERTENSION
     Route: 048
  22. LEVOTHYROXINE SODIUM [Concomitant]
     Indication: HYPOTHYROIDISM
     Route: 048
     Dates: start: 20050101
  23. VESICARE [Concomitant]
     Dosage: 5 MG ONCE EVERY NIGHT
     Route: 048
     Dates: start: 20080101
  24. DOCETAXEL [Suspect]
     Route: 042
     Dates: start: 20100514
  25. PHENAZOPYRIDINE HCL TAB [Concomitant]
     Indication: BLADDER PAIN
     Route: 048
     Dates: start: 20080101
  26. PHENERGAN HCL [Concomitant]
     Indication: NAUSEA
     Route: 048
     Dates: start: 20100514
  27. HYDROXYZINE [Concomitant]
     Indication: MOTION SICKNESS
     Route: 048
     Dates: start: 20090101
  28. CARBOPLATIN [Suspect]
     Route: 042
     Dates: start: 20100514
  29. VISCOUS LIDOCAINE W MAALOX [Concomitant]
     Dosage: START DATE :18 MAY ; DOSE :5 CC
     Route: 048
  30. CLONIDINE [Concomitant]
     Dosage: START DATE : 26/6
     Route: 048
  31. DIOVAN [Concomitant]
     Indication: HYPERTENSION
     Route: 048
     Dates: start: 20080101
  32. PERCOCET [Concomitant]
     Indication: PAIN
     Route: 048
     Dates: start: 20080101
  33. OXYCONTIN [Concomitant]
     Indication: PAIN
     Dates: start: 20080101

REACTIONS (2)
  - MENTAL STATUS CHANGES [None]
  - HYPERTENSION [None]
